FAERS Safety Report 9295935 (Version 1)
Quarter: 2013Q2

REPORT INFORMATION
  Report Type: Spontaneous
  Country: US (occurrence: US)
  Receive Date: 20130517
  Receipt Date: 20130517
  Transmission Date: 20140414
  Serious: Yes (Other)
  Sender: FDA-Public Use
  Company Number: US-PFIZER INC-2013147811

PATIENT
  Sex: Female

DRUGS (1)
  1. AROMASIN [Suspect]
     Indication: BREAST CANCER
     Dosage: 25 MG, UNK

REACTIONS (5)
  - Intracranial aneurysm [Unknown]
  - Facial bones fracture [Unknown]
  - Back disorder [Unknown]
  - Injury [Unknown]
  - Memory impairment [Unknown]
